FAERS Safety Report 15280106 (Version 8)
Quarter: 2019Q1

REPORT INFORMATION
  Report Type: Report from Study
  Country: BE (occurrence: BE)
  Receive Date: 20180815
  Receipt Date: 20190318
  Transmission Date: 20190417
  Serious: Yes (Death, Hospitalization, Other)
  Sender: FDA-Public Use
  Company Number: BE-TAKEDA-2018MPI010368

PATIENT
  Age: 87 Year
  Sex: Male

DRUGS (6)
  1. DARATUMUMAB [Suspect]
     Active Substance: DARATUMUMAB
     Indication: PLASMA CELL MYELOMA
     Dosage: 1168 MG, UNK
     Route: 065
     Dates: start: 20180717
  2. DARATUMUMAB [Suspect]
     Active Substance: DARATUMUMAB
     Dosage: 1168 MILLIGRAM
     Route: 065
     Dates: start: 20180816, end: 20180824
  3. IXAZOMIB [Suspect]
     Active Substance: IXAZOMIB
     Dosage: 4 MILLIGRAM
     Route: 065
     Dates: start: 20180816, end: 20180824
  4. IXAZOMIB [Suspect]
     Active Substance: IXAZOMIB
     Indication: PLASMA CELL MYELOMA
     Dosage: 4 MILLIGRAM, UNK
     Route: 065
     Dates: start: 20180717
  5. DEXAMETHASONE. [Suspect]
     Active Substance: DEXAMETHASONE
     Indication: PLASMA CELL MYELOMA
     Dosage: 20 MG, UNK
     Route: 065
     Dates: start: 20180717
  6. DEXAMETHASONE. [Suspect]
     Active Substance: DEXAMETHASONE
     Dosage: 10 MG, UNK
     Route: 065
     Dates: start: 20180816, end: 20180816

REACTIONS (3)
  - Anaemia [Not Recovered/Not Resolved]
  - Decubitus ulcer [Not Recovered/Not Resolved]
  - Staphylococcal sepsis [Not Recovered/Not Resolved]

NARRATIVE: CASE EVENT DATE: 20180807
